FAERS Safety Report 21400092 (Version 2)
Quarter: 2022Q4

REPORT INFORMATION
  Report Type: Spontaneous
  Country: DE (occurrence: CH)
  Receive Date: 20221002
  Receipt Date: 20221007
  Transmission Date: 20230113
  Serious: Yes (Other)
  Sender: FDA-Public Use
  Company Number: None

PATIENT
  Age: 50 Year
  Sex: Female
  Weight: 58 kg

DRUGS (2)
  1. ESTRADIOL [Suspect]
     Active Substance: ESTRADIOL
     Indication: Product used for unknown indication
     Dosage: 0.5 MG (0.5 MG ON MON / WED / THU / FRI / SUN IN THE EVENINGS)
     Route: 065
     Dates: start: 202203
  2. UTROGESTAN [Suspect]
     Active Substance: PROGESTERONE
     Indication: Product used for unknown indication
     Dosage: 300 MG (300 MG EVERY 6 WEEKS FOR 10 DAYS)
     Route: 067
     Dates: start: 2022

REACTIONS (6)
  - Postmenopausal haemorrhage [Unknown]
  - Irritability [Unknown]
  - Breast tenderness [Unknown]
  - Vaginal haemorrhage [Unknown]
  - Product use issue [Unknown]
  - Headache [Unknown]

NARRATIVE: CASE EVENT DATE: 20220101
